FAERS Safety Report 16422891 (Version 3)
Quarter: 2019Q4

REPORT INFORMATION
  Report Type: Spontaneous
  Country: US (occurrence: US)
  Receive Date: 20190612
  Receipt Date: 20191202
  Transmission Date: 20200122
  Serious: No
  Sender: FDA-Public Use
  Company Number: US-SA-2019SA159823

PATIENT
  Age: 26 Year
  Sex: Male

DRUGS (1)
  1. DUPIXENT [Suspect]
     Active Substance: DUPILUMAB
     Indication: DERMATITIS
     Dosage: 300 MG, QOW
     Route: 058
     Dates: start: 20171031

REACTIONS (7)
  - Dermatitis [Not Recovered/Not Resolved]
  - Condition aggravated [Not Recovered/Not Resolved]
  - Rash [Recovered/Resolved]
  - Product dose omission [Unknown]
  - Ocular hyperaemia [Not Recovered/Not Resolved]
  - Blepharitis [Not Recovered/Not Resolved]
  - Eye pruritus [Not Recovered/Not Resolved]
